FAERS Safety Report 5144662-2 (Version None)
Quarter: 2006Q4

REPORT INFORMATION
  Report Type: 
  Country: None (occurrence: None)
  Receive Date: 20061031
  Receipt Date: 20061019
  Transmission Date: 20070319
  Serious: Yes (Other)
  Sender: FDA-Public Use
  Company Number: 2006128130

PATIENT
  Age: 54 Year
  Sex: Male

DRUGS (2)
  1. NICORETTE [Suspect]
     Indication: SMOKING CESSATION THERAPY
     Dosage: FOUR CARTRIDGES DAILY, INHALATION
     Route: 055
     Dates: start: 20060101
  2. VALPROATE SODIUM [Concomitant]

REACTIONS (1)
  - DRUG DEPENDENCE [None]
